FAERS Safety Report 5527720-X (Version None)
Quarter: 2007Q4

REPORT INFORMATION
  Report Type: 
  Country: None (occurrence: None)
  Receive Date: 20071123
  Receipt Date: 20071115
  Transmission Date: 20080405
  Serious: Yes (Hospitalization)
  Sender: FDA-Public Use
  Company Number: CERZ-11516

PATIENT
  Age: 55 Year
  Sex: Male
  Weight: 84 kg

DRUGS (2)
  1. CEREZYME [Suspect]
     Indication: GAUCHER'S DISEASE
     Dosage: 60 U/KG Q3WKS IV
     Route: 042
     Dates: end: 20071026
  2. CEREZYME [Suspect]
     Indication: GAUCHER'S DISEASE
     Dosage: 2500 UNITS Q32KS IV
     Route: 042
     Dates: start: 19970430

REACTIONS (2)
  - HEPATIC CANCER METASTATIC [None]
  - METASTASES TO LUNG [None]
